FAERS Safety Report 23674196 (Version 1)
Quarter: 2024Q1

REPORT INFORMATION
  Report Type: Spontaneous
  Country: ES (occurrence: ES)
  Receive Date: 20240326
  Receipt Date: 20240326
  Transmission Date: 20240410
  Serious: Yes (Life-Threatening, Other)
  Sender: FDA-Public Use
  Company Number: None

PATIENT
  Age: 60 Year
  Sex: Male

DRUGS (2)
  1. NIVOLUMAB [Suspect]
     Active Substance: NIVOLUMAB
     Indication: Oesophageal adenocarcinoma
     Dosage: 240MG EVERY 2 WEEKS FOR 6 CYCLES
     Dates: start: 20231204, end: 20240307
  2. METFORMIN [Concomitant]
     Active Substance: METFORMIN HYDROCHLORIDE
     Indication: Product used for unknown indication
     Dosage: 1 COMP DAY; METFORMIN ALTER 850 MG EFG FILM-COATED TABLETS, 50 TABLETS
     Route: 048
     Dates: start: 20190302

REACTIONS (2)
  - Autoimmune lung disease [Recovering/Resolving]
  - Sinus tachycardia [Recovered/Resolved]

NARRATIVE: CASE EVENT DATE: 20240117
